FAERS Safety Report 7827876-X (Version None)
Quarter: 2011Q4

REPORT INFORMATION
  Report Type: 
  Country: None (occurrence: None)
  Receive Date: 20111020
  Receipt Date: 20111012
  Transmission Date: 20120403
  Serious: Yes (Death, Other)
  Sender: FDA-Public Use
  Company Number: US-BAYER-200934470NA

PATIENT
  Age: 56 Year
  Sex: Male
  Weight: 70 kg

DRUGS (32)
  1. TRASYLOL [Suspect]
     Indication: CORONARY ARTERY BYPASS
     Dosage: 1 ML, UNK
     Route: 042
     Dates: start: 20050614, end: 20050614
  2. ANCEF [Concomitant]
     Dosage: 2 G, UNK
     Route: 042
     Dates: start: 20050614, end: 20050614
  3. ALBUMIN (HUMAN) [Concomitant]
     Dosage: 25 G, UNK
     Route: 042
     Dates: start: 20050614, end: 20050614
  4. MANNITOL [Concomitant]
     Dosage: 500CC
     Route: 042
     Dates: start: 20050614, end: 20050614
  5. PROTAMINE SULFATE [Concomitant]
  6. ACETYLSALICYLIC ACID SRT [Concomitant]
     Dosage: 81 MG, UNK
     Route: 048
     Dates: start: 20040301
  7. BROMFED [Concomitant]
     Dosage: 1 DAILY
     Route: 048
     Dates: start: 20030318
  8. CRESTOR [Concomitant]
     Dosage: 40 MG, QD
     Route: 048
  9. DYAZIDE [Concomitant]
     Dosage: 1 PILL DAILY
     Route: 048
  10. PAXIL CR [Concomitant]
     Dosage: 1 DAILY
     Route: 048
     Dates: start: 20030603
  11. HEPARIN [Concomitant]
  12. HEPARIN [Concomitant]
     Dosage: 40000 U, UNK
     Route: 042
     Dates: start: 20050614, end: 20050614
  13. LOTREL [Concomitant]
     Dosage: 10/20 DAILY
     Route: 048
  14. DIOVAN [Concomitant]
     Dosage: 160 MG, BID
     Route: 048
     Dates: start: 20031120
  15. TENORETIC 100 [Concomitant]
     Dosage: 50/25 MG
  16. LEVOPHED [Concomitant]
     Dosage: 40 MG, UNK
  17. CLONIDINE [Concomitant]
     Dosage: 0.1 MG, BID
     Route: 048
     Dates: start: 20031120
  18. RED BLOOD CELLS [Concomitant]
     Dosage: 4 U, UNK
     Route: 042
     Dates: start: 20050614
  19. TRASYLOL [Suspect]
     Dosage: 200 ML, BOLUS
     Route: 042
     Dates: start: 20050614, end: 20050614
  20. TRASYLOL [Suspect]
     Dosage: 50ML/HOUR, INFUSION
     Route: 042
     Dates: start: 20050614, end: 20050614
  21. PRILOSEC [Concomitant]
     Dosage: 20 MG, UNK
     Route: 048
     Dates: start: 19970602
  22. PRAVACHOL [Concomitant]
     Dosage: 1 DAILY
     Route: 048
     Dates: start: 20030421, end: 20050508
  23. HYDROCODONE BITARTRATE [Concomitant]
     Dosage: UNK UNK, PRN
     Dates: start: 20040301
  24. DOBUTREX [Concomitant]
     Dosage: UNK
  25. LASIX [Concomitant]
     Dosage: 60 MG, UNK
  26. LIDOCAINE [Concomitant]
     Dosage: 100 MG, UNK
     Route: 042
     Dates: start: 20050614, end: 20050614
  27. MAGNESIUM SULFATE [Concomitant]
     Dosage: 2 G, UNK
     Route: 042
     Dates: start: 20050614, end: 20050614
  28. TRASYLOL [Suspect]
     Dosage: 200 ML, PUMP PRIME
     Route: 042
     Dates: start: 20050614, end: 20050614
  29. MOTRIN [Concomitant]
     Dosage: 4-5 TABLETS
     Route: 048
     Dates: start: 20040301
  30. VERSED [Concomitant]
     Dosage: 5 MG, UNK
     Route: 042
     Dates: start: 20050614, end: 20050614
  31. PROPOFOL [Concomitant]
     Dosage: 60 MG, UNK
     Route: 048
     Dates: start: 20050614, end: 20050614
  32. ATENOLOL [Concomitant]
     Dosage: 50 MG, QD
     Route: 048

REACTIONS (13)
  - RENAL FAILURE [None]
  - FEAR [None]
  - RENAL IMPAIRMENT [None]
  - ANHEDONIA [None]
  - STRESS [None]
  - INJURY [None]
  - ANXIETY [None]
  - RENAL INJURY [None]
  - MULTI-ORGAN FAILURE [None]
  - EMOTIONAL DISTRESS [None]
  - UNEVALUABLE EVENT [None]
  - PAIN [None]
  - DEATH [None]
